FAERS Safety Report 8828697 (Version 2)
Quarter: 2014Q3

REPORT INFORMATION
  Report Type: Report from Study
  Country: US (occurrence: US)
  Receive Date: 20121008
  Receipt Date: 20140909
  Transmission Date: 20150326
  Serious: Yes (Other)
  Sender: FDA-Public Use
  Company Number: US-ROCHE-1134314

PATIENT
  Sex: Male

DRUGS (10)
  1. CYTOXAN [Concomitant]
     Active Substance: CYCLOPHOSPHAMIDE
  2. PREDNISONE. [Concomitant]
     Active Substance: PREDNISONE
  3. RITUXAN [Suspect]
     Active Substance: RITUXIMAB
     Indication: NEOPLASM MALIGNANT
  4. DOXORUBICIN [Concomitant]
     Active Substance: DOXORUBICIN
  5. RITUXAN [Suspect]
     Active Substance: RITUXIMAB
     Indication: PROSTATE CANCER
  6. ETOPOSIDE. [Concomitant]
     Active Substance: ETOPOSIDE
  7. COUMADINE [Concomitant]
     Active Substance: WARFARIN SODIUM
  8. RITUXAN [Suspect]
     Active Substance: RITUXIMAB
     Indication: MALIGNANT LYMPHOID NEOPLASM
  9. RITUXAN [Suspect]
     Active Substance: RITUXIMAB
     Indication: NON-HODGKIN^S LYMPHOMA
     Route: 042
     Dates: start: 20010405
  10. VINCRISTINE [Concomitant]
     Active Substance: VINCRISTINE

REACTIONS (10)
  - Ill-defined disorder [Unknown]
  - Arthralgia [Unknown]
  - Gastrointestinal haemorrhage [Unknown]
  - Decreased appetite [Unknown]
  - Aortic aneurysm [Unknown]
  - Anaemia [Recovering/Resolving]
  - Dizziness [Not Recovered/Not Resolved]
  - Pallor [Unknown]
  - Asthenia [Not Recovered/Not Resolved]
  - Dyspnoea exertional [Unknown]
